FAERS Safety Report 13916730 (Version 1)
Quarter: 2017Q3

REPORT INFORMATION
  Report Type: Spontaneous
  Country: IL (occurrence: IL)
  Receive Date: 20170829
  Receipt Date: 20170829
  Transmission Date: 20171127
  Serious: Yes (Hospitalization, Other)
  Sender: FDA-Public Use
  Company Number: IL-JNJFOC-20170823730

PATIENT
  Age: 77 Year
  Sex: Male

DRUGS (2)
  1. XARELTO [Suspect]
     Active Substance: RIVAROXABAN
     Indication: PRODUCT USED FOR UNKNOWN INDICATION
     Route: 048
  2. ELTROXIN [Concomitant]
     Active Substance: LEVOTHYROXINE
     Route: 065

REACTIONS (13)
  - Urinary tract infection enterococcal [Unknown]
  - C-reactive protein increased [Unknown]
  - Pericardial effusion [Recovered/Resolved]
  - Pyrexia [Unknown]
  - Confusional state [Unknown]
  - Pulmonary congestion [Unknown]
  - Staphylococcal infection [Unknown]
  - Viral pericarditis [Recovering/Resolving]
  - Thrombosis [Unknown]
  - Pulmonary oedema [Recovering/Resolving]
  - Blood urea increased [Unknown]
  - General physical health deterioration [Unknown]
  - Platelet count decreased [Unknown]

NARRATIVE: CASE EVENT DATE: 20170622
